FAERS Safety Report 23969611 (Version 4)
Quarter: 2024Q2

REPORT INFORMATION
  Report Type: Spontaneous
  Country: US (occurrence: US)
  Receive Date: 20240613
  Receipt Date: 20240624
  Transmission Date: 20240717
  Serious: Yes (Hospitalization, Other)
  Sender: FDA-Public Use
  Company Number: US-CELLTRION INC.-2024US013936

PATIENT

DRUGS (6)
  1. INFLECTRA [Suspect]
     Active Substance: INFLIXIMAB-DYYB
     Indication: Rheumatoid arthritis
     Dosage: 200 MG OR SOMETHING, MARCH 29 (FIRST INFUSION)
     Route: 042
  2. INFLECTRA [Suspect]
     Active Substance: INFLIXIMAB-DYYB
     Dosage: I HAD ONE TWO WEEKS LATER, I THINK ON THE 18TH (2ND INFUSION)
     Route: 042
  3. INFLECTRA [Suspect]
     Active Substance: INFLIXIMAB-DYYB
     Dosage: 16TH OF MAY (THIRD INFUSION)
     Route: 042
  4. INFLECTRA [Suspect]
     Active Substance: INFLIXIMAB-DYYB
     Dosage: 17MAY / SHE HAD THE THIRD INFUSION OF INFLECTRA. / HER LAST INFUSION WAS ON 17MAY
     Route: 042
  5. CLARITIN [Suspect]
     Active Substance: LORATADINE
     Indication: Product used for unknown indication
  6. ACETAMINOPHEN [Suspect]
     Active Substance: ACETAMINOPHEN
     Indication: Product used for unknown indication

REACTIONS (17)
  - Blood calcium decreased [Unknown]
  - Blood potassium decreased [Unknown]
  - Lethargy [Unknown]
  - Adverse drug reaction [Unknown]
  - Back pain [Unknown]
  - Pain in jaw [Unknown]
  - Gait disturbance [Unknown]
  - Inflammation [Unknown]
  - Arthralgia [Unknown]
  - Headache [Unknown]
  - Myalgia [Unknown]
  - Pain [Unknown]
  - Pyrexia [Unknown]
  - Hypertension [Unknown]
  - Nausea [Unknown]
  - Fatigue [Unknown]
  - Musculoskeletal stiffness [Unknown]
